FAERS Safety Report 9338032 (Version 1)
Quarter: 2013Q2

REPORT INFORMATION
  Report Type: Spontaneous
  Country: FR (occurrence: FR)
  Receive Date: 20130610
  Receipt Date: 20130610
  Transmission Date: 20140414
  Serious: Yes (Life-Threatening, Hospitalization)
  Sender: FDA-Public Use
  Company Number: FR-AMGEN-FRASP2013040319

PATIENT
  Age: 77 Year
  Sex: Male
  Weight: 71 kg

DRUGS (7)
  1. ENBREL [Suspect]
     Indication: RHEUMATOID ARTHRITIS
     Dosage: 50 MG, WEEKLY (TOTAL DOSE OF 13,000MG)
     Route: 058
     Dates: start: 200709, end: 201209
  2. IMETH [Suspect]
     Indication: RHEUMATOID ARTHRITIS
     Dosage: 20 MG, WEEKLY
     Dates: start: 1997
  3. CORTANCYL [Concomitant]
     Indication: RHEUMATOID ARTHRITIS
     Dosage: 10 TO 20 MG DAILY
     Route: 048
     Dates: start: 1993
  4. DIAMICRON [Concomitant]
     Dosage: 60 MG DAILY
  5. CRESTOR [Concomitant]
     Dosage: 5 MG DAILY
  6. OGAST [Concomitant]
     Dosage: 30 MG DAILY
  7. SPECIAFOLDINE [Concomitant]
     Dosage: 15 MG, WEEKLY

REACTIONS (3)
  - Colon cancer metastatic [Not Recovered/Not Resolved]
  - Metastases to liver [Not Recovered/Not Resolved]
  - Metastases to lung [Not Recovered/Not Resolved]
